FAERS Safety Report 7693480-X (Version None)
Quarter: 2011Q3

REPORT INFORMATION
  Report Type: 
  Country: None (occurrence: None)
  Receive Date: 20110819
  Receipt Date: 20110819
  Transmission Date: 20111222
  Serious: No
  Sender: FDA-Public Use
  Company Number: None

PATIENT
  Age: 72 Year
  Sex: Male
  Weight: 1125.8 kg

DRUGS (1)
  1. AVASTIN [Suspect]
     Indication: DIABETIC RETINAL OEDEMA
     Dosage: 1/25MG
     Route: 031
     Dates: start: 20110812, end: 20110812

REACTIONS (4)
  - EYE INFLAMMATION [None]
  - EYE PAIN [None]
  - BLINDNESS [None]
  - INFLAMMATION [None]
